FAERS Safety Report 24299879 (Version 1)
Quarter: 2024Q3

REPORT INFORMATION
  Report Type: Report from Study
  Country: CO (occurrence: CO)
  Receive Date: 20240909
  Receipt Date: 20240909
  Transmission Date: 20241016
  Serious: Yes (Hospitalization, Other)
  Sender: NOVARTIS
  Company Number: CO-002147023-NVSC2023CO158256

PATIENT
  Age: 48 Year
  Sex: Female
  Weight: 90 kg

DRUGS (3)
  1. ELTROMBOPAG OLAMINE [Suspect]
     Active Substance: ELTROMBOPAG OLAMINE
     Indication: Immune thrombocytopenia
     Dosage: 100 MG, QD
     Route: 048
     Dates: start: 2015
  2. ELTROMBOPAG OLAMINE [Suspect]
     Active Substance: ELTROMBOPAG OLAMINE
     Indication: Aplastic anaemia
     Dosage: 75 MG, QD
     Route: 048
     Dates: start: 20230718
  3. ELTROMBOPAG OLAMINE [Suspect]
     Active Substance: ELTROMBOPAG OLAMINE
     Indication: Congenital aplasia
     Dosage: 50 MG
     Route: 048

REACTIONS (12)
  - Urinary tract infection [Recovered/Resolved]
  - Platelet count decreased [Recovered/Resolved]
  - Vomiting [Recovered/Resolved]
  - Platelet count increased [Recovered/Resolved]
  - Contusion [Unknown]
  - Depression [Unknown]
  - Influenza [Unknown]
  - Malaise [Not Recovered/Not Resolved]
  - Feeling of despair [Unknown]
  - Depressed mood [Unknown]
  - Product use issue [Unknown]
  - Platelet count abnormal [Recovered/Resolved]

NARRATIVE: CASE EVENT DATE: 20231130
